FAERS Safety Report 14308158 (Version 1)
Quarter: 2017Q4

REPORT INFORMATION
  Report Type: Spontaneous
  Country: NZ (occurrence: NZ)
  Receive Date: 20171220
  Receipt Date: 20171220
  Transmission Date: 20180321
  Serious: Yes (Other)
  Sender: FDA-Public Use
  Company Number: NZ-ORION CORPORATION ORION PHARMA-TREX2017-4158

PATIENT
  Age: 63 Year
  Sex: Male

DRUGS (20)
  1. VERAPAMIL [Suspect]
     Active Substance: VERAPAMIL HYDROCHLORIDE
     Indication: SUPRAVENTRICULAR TACHYCARDIA
     Route: 065
  2. SALBUTAMOL [Concomitant]
     Active Substance: ALBUTEROL
     Route: 065
  3. METHOTREXATE (TRADE NAME UNKNOWN) [Suspect]
     Active Substance: METHOTREXATE
     Indication: RHEUMATIC DISORDER
     Dosage: STRENGTH: 10 MG; ON MONDAY OF WEEK
     Route: 048
     Dates: start: 201506
  4. PLAQUENIL [Suspect]
     Active Substance: HYDROXYCHLOROQUINE SULFATE
     Indication: RHEUMATIC DISORDER
     Route: 065
     Dates: start: 201507
  5. HUMIRA [Suspect]
     Active Substance: ADALIMUMAB
     Route: 065
  6. SULPHASALAZINE [Suspect]
     Active Substance: SULFASALAZINE
     Indication: RHEUMATIC DISORDER
     Route: 065
  7. CELECOXIB. [Concomitant]
     Active Substance: CELECOXIB
     Route: 065
  8. FOLIC ACID. [Concomitant]
     Active Substance: FOLIC ACID
     Route: 065
  9. MICREME H [Concomitant]
     Route: 065
  10. OMEPRAZOLE. [Concomitant]
     Active Substance: OMEPRAZOLE
     Route: 065
  11. PREDNISONE. [Concomitant]
     Active Substance: PREDNISONE
     Route: 065
  12. ENBREL [Suspect]
     Active Substance: ETANERCEPT
     Route: 030
  13. CYCLOPHOSPHAMIDE. [Suspect]
     Active Substance: CYCLOPHOSPHAMIDE
     Indication: DEMYELINATION
  14. CYCLOPHOSPHAMIDE. [Suspect]
     Active Substance: CYCLOPHOSPHAMIDE
     Indication: NEUROPATHY PERIPHERAL
  15. CYCLOPHOSPHAMIDE. [Suspect]
     Active Substance: CYCLOPHOSPHAMIDE
     Indication: GOUT
     Route: 065
  16. COLECALCIFEROL [Concomitant]
     Active Substance: CHOLECALCIFEROL
     Route: 065
  17. METHYLPREDNISOLONE. [Suspect]
     Active Substance: METHYLPREDNISOLONE
     Route: 065
  18. METOPROLOL. [Suspect]
     Active Substance: METOPROLOL
     Indication: SUPRAVENTRICULAR TACHYCARDIA
     Route: 048
  19. NORTRIPTYLINE [Concomitant]
     Active Substance: NORTRIPTYLINE
     Route: 065
  20. PARACETAMOL [Concomitant]
     Active Substance: ACETAMINOPHEN
     Route: 065

REACTIONS (11)
  - Prostatism [Unknown]
  - Bronchitis [Unknown]
  - Joint effusion [Unknown]
  - Carpal tunnel syndrome [Unknown]
  - Supraventricular tachycardia [Unknown]
  - Arthritis [Recovered/Resolved]
  - Rheumatic disorder [Unknown]
  - Neuropathy peripheral [Unknown]
  - Polyarthritis [Not Recovered/Not Resolved]
  - Demyelination [Unknown]
  - Treatment failure [Unknown]

NARRATIVE: CASE EVENT DATE: 20170911
